FAERS Safety Report 20784280 (Version 2)
Quarter: 2022Q2

REPORT INFORMATION
  Report Type: Report from Study
  Country: US (occurrence: None)
  Receive Date: 20220504
  Receipt Date: 20220608
  Transmission Date: 20220721
  Serious: Yes (Hospitalization)
  Sender: FDA-Public Use
  Company Number: US-ROCHE-3088046

PATIENT
  Age: 58 Year
  Sex: Female
  Weight: 64.5 kg

DRUGS (3)
  1. VENETOCLAX [Suspect]
     Active Substance: VENETOCLAX
     Indication: Chronic lymphocytic leukaemia
     Dosage: TOTAL DOSE ADMINISTERED THIS COURSE (DOSE): 8400 MG?LAST ADMINISTERED DATE: 31/MAR/2022?20MG ORAL ON
     Route: 048
     Dates: start: 20220311, end: 20220331
  2. IBRUTINIB [Suspect]
     Active Substance: IBRUTINIB
     Indication: Chronic lymphocytic leukaemia
     Dosage: 420 MG ORALLY ON DAYS 1- 28?TOTAL DOSE ADMINISTERED THIS COURSE (DOSE): 8820 MG?LAST ADMINISTERED DA
     Route: 048
     Dates: start: 20220311, end: 20220331
  3. OBINUTUZUMAB [Suspect]
     Active Substance: OBINUTUZUMAB
     Indication: Chronic lymphocytic leukaemia
     Dosage: LAST DOSE WAS ADMINISTERED ON 04/AUG/2021?100 MG ON DAY 1, CYCLE 1900 MG ON DAY2, CYCLE 11000 MG ON
     Route: 042
     Dates: start: 20210316, end: 20220310

REACTIONS (3)
  - Bacteraemia [Recovered/Resolved]
  - Pneumonitis [Unknown]
  - Sepsis [Recovered/Resolved]

NARRATIVE: CASE EVENT DATE: 20220402
